FAERS Safety Report 9642920 (Version 2)
Quarter: 2013Q4

REPORT INFORMATION
  Report Type: Report from Study
  Country: US (occurrence: US)
  Receive Date: 20131024
  Receipt Date: 20131028
  Transmission Date: 20140711
  Serious: Yes (Death)
  Sender: FDA-Public Use
  Company Number: PHEH2013US022094

PATIENT
  Age: 56 Year
  Sex: Male

DRUGS (1)
  1. TEGRETOL [Suspect]
     Dosage: 400 MG, UNK

REACTIONS (1)
  - Metastases to central nervous system [Fatal]
